FAERS Safety Report 8915181 (Version 1)
Quarter: 2012Q4

REPORT INFORMATION
  Report Type: Report from Study
  Country: RU (occurrence: RU)
  Receive Date: 20121119
  Receipt Date: 20121119
  Transmission Date: 20130627
  Serious: Yes (Other)
  Sender: FDA-Public Use
  Company Number: RU-ROCHE-1154927

PATIENT
  Age: 61 Year
  Sex: Female
  Weight: 70 kg

DRUGS (6)
  1. BEVACIZUMAB [Suspect]
     Indication: COLON CANCER METASTATIC
     Route: 065
     Dates: start: 20120319, end: 20121030
  2. 5-FU [Concomitant]
     Indication: COLON CANCER
     Route: 041
     Dates: start: 20120319
  3. 5-FU [Concomitant]
     Route: 041
     Dates: end: 20121030
  4. LEUCOVORIN [Concomitant]
     Indication: COLON CANCER
     Route: 042
     Dates: start: 20120731, end: 20121030
  5. MITOMYCIN [Concomitant]
     Indication: COLON CANCER
     Route: 065
     Dates: start: 20120319, end: 20120731
  6. IRINOTECAN [Concomitant]
     Indication: COLON CANCER
     Route: 042
     Dates: start: 20120731, end: 20121030

REACTIONS (1)
  - Disease progression [Not Recovered/Not Resolved]
